FAERS Safety Report 13843586 (Version 1)
Quarter: 2017Q3

REPORT INFORMATION
  Report Type: Spontaneous
  Country: US (occurrence: US)
  Receive Date: 20170808
  Receipt Date: 20170808
  Transmission Date: 20171127
  Serious: Yes (Other)
  Sender: FDA-Public Use
  Company Number: None

PATIENT
  Age: 70 Year
  Sex: Female
  Weight: 67.5 kg

DRUGS (8)
  1. HUMULIN N [Concomitant]
     Active Substance: INSULIN HUMAN
  2. PROPRANOLOL [Concomitant]
     Active Substance: PROPRANOLOL HYDROCHLORIDE
  3. FAMOTIDINE. [Concomitant]
     Active Substance: FAMOTIDINE
  4. CAPECITABINE TABLET AMNEAL [Suspect]
     Active Substance: CAPECITABINE
     Indication: BENIGN PANCREATIC NEOPLASM
     Route: 048
     Dates: start: 20170606, end: 20170807
  5. LANTUS SOLOSTAR [Concomitant]
     Active Substance: INSULIN GLARGINE
  6. SIMVASTATIN. [Concomitant]
     Active Substance: SIMVASTATIN
  7. OXYCODONE [Concomitant]
     Active Substance: OXYCODONE
  8. ASPIRIN. [Concomitant]
     Active Substance: ASPIRIN

REACTIONS (3)
  - Blister [None]
  - Pruritus [None]
  - Swelling [None]

NARRATIVE: CASE EVENT DATE: 20170801
